FAERS Safety Report 10143925 (Version 1)
Quarter: 2014Q2

REPORT INFORMATION
  Report Type: Spontaneous
  Country: US (occurrence: US)
  Receive Date: 20140430
  Receipt Date: 20140430
  Transmission Date: 20141212
  Serious: Yes (Hospitalization)
  Sender: FDA-Public Use
  Company Number: US-DSJP-DSU-2014-106221

PATIENT
  Sex: 0

DRUGS (1)
  1. AZOR [Suspect]
     Indication: PRODUCT USED FOR UNKNOWN INDICATION
     Dosage: 2.5 DF, TOTAL
     Route: 048
     Dates: start: 20131011, end: 20131011

REACTIONS (1)
  - Accidental exposure to product by child [Unknown]
